FAERS Safety Report 16247317 (Version 1)
Quarter: 2019Q2

REPORT INFORMATION
  Report Type: Spontaneous
  Country: GR (occurrence: GR)
  Receive Date: 20190427
  Receipt Date: 20190427
  Transmission Date: 20190711
  Serious: Yes (Other)
  Sender: FDA-Public Use
  Company Number: GR-009507513-1904GRC011041

PATIENT
  Sex: Female

DRUGS (2)
  1. AERIUS (DESLORATADINE) [Suspect]
     Active Substance: DESLORATADINE
     Indication: RHINITIS ALLERGIC
     Dosage: 5 MILLIGRAM/TABLET
     Route: 048
     Dates: start: 20190424
  2. AERIUS (DESLORATADINE) [Suspect]
     Active Substance: DESLORATADINE
     Dosage: UNK
     Dates: start: 2018

REACTIONS (5)
  - Ocular hyperaemia [Unknown]
  - Erythema [Unknown]
  - Choking [Unknown]
  - Skin wrinkling [Unknown]
  - Sneezing [Unknown]

NARRATIVE: CASE EVENT DATE: 20190424
